FAERS Safety Report 26122433 (Version 1)
Quarter: 2025Q4

REPORT INFORMATION
  Report Type: Spontaneous
  Country: EU (occurrence: EU)
  Receive Date: 20251204
  Receipt Date: 20251204
  Transmission Date: 20260117
  Serious: Yes (Hospitalization, Other)
  Sender: SANDOZ
  Company Number: None

PATIENT
  Age: 32 Year
  Sex: Male
  Weight: 94 kg

DRUGS (3)
  1. CEFTRIAXONE [Suspect]
     Active Substance: CEFTRIAXONE
     Indication: Infection
     Dosage: 2 G, QD
     Route: 030
     Dates: start: 20251018, end: 20251018
  2. ACETAMINOPHEN [Suspect]
     Active Substance: ACETAMINOPHEN
     Indication: Pain
     Dosage: 4 G, QD
     Route: 048
     Dates: start: 20251015, end: 20251020
  3. SPIRAMYCIN [Suspect]
     Active Substance: SPIRAMYCIN
     Indication: Infection
     Dosage: 4.5 10*6.IU, QD
     Route: 048
     Dates: start: 20251018, end: 20251019

REACTIONS (2)
  - Hepatic cytolysis [Recovering/Resolving]
  - Cholestasis [Recovering/Resolving]

NARRATIVE: CASE EVENT DATE: 20251020
